FAERS Safety Report 6976665-7 (Version None)
Quarter: 2010Q3

REPORT INFORMATION
  Report Type: 
  Country: None (occurrence: None)
  Receive Date: 20100910
  Receipt Date: 20100830
  Transmission Date: 20110219
  Serious: Yes (Hospitalization, Other)
  Sender: FDA-Public Use
  Company Number: ES-PFIZER INC-2010071474

PATIENT
  Age: 65 Year
  Sex: Female

DRUGS (7)
  1. SERTRALINE HYDROCHLORIDE [Suspect]
     Indication: DEPRESSION
     Dosage: 50 MG/24 HOURS
     Route: 048
  2. SERTRALINE HYDROCHLORIDE [Suspect]
     Indication: AFFECTIVE DISORDER
  3. DOXYCYCLINE CALCIUM [Suspect]
     Indication: RESPIRATORY TRACT INFECTION
     Dosage: 100 MG, (1 IN 12 HR)
     Route: 048
  4. DOXYCYCLINE CALCIUM [Suspect]
  5. LEVOFLOXACIN [Suspect]
     Indication: RESPIRATORY TRACT INFECTION
     Dosage: 500 MG/24 HOURS
     Route: 048
  6. COTRIM [Suspect]
     Indication: URINARY TRACT INFECTION
     Dosage: 80 MG/400 MG (1 IN 12 HR)
     Route: 048
  7. DOMPERIDONE [Concomitant]
     Dosage: OCCASIONAL, UNK

REACTIONS (6)
  - ASTHENIA [None]
  - CHOLESTASIS [None]
  - DECREASED APPETITE [None]
  - FAECES PALE [None]
  - HEPATITIS TOXIC [None]
  - PRURITUS GENERALISED [None]
